FAERS Safety Report 9287398 (Version 1)
Quarter: 2013Q2

REPORT INFORMATION
  Report Type: Spontaneous
  Country: US (occurrence: US)
  Receive Date: 20130514
  Receipt Date: 20130514
  Transmission Date: 20140414
  Serious: No
  Sender: FDA-Public Use
  Company Number: US-009507513-1305USA006828

PATIENT
  Sex: Male
  Weight: 83.9 kg

DRUGS (8)
  1. VICTRELIS [Suspect]
     Dosage: 800 MG 4 CAPSULES, Q8H
     Route: 048
  2. REBETOL [Suspect]
  3. PEGASYS [Suspect]
     Dosage: CONCENTRATION 180 MCG\M, UNK
  4. OXYCODONE [Concomitant]
  5. DICLOFENAC [Concomitant]
     Dosage: ER
  6. IRON (UNSPECIFIED) [Concomitant]
  7. POTASSIUM (UNSPECIFIED) [Concomitant]
     Dosage: 25 MEQ EF
  8. CALCIUM (UNSPECIFIED) [Concomitant]
     Dosage: COMCENTRATION 500 TAB

REACTIONS (4)
  - Lethargy [Unknown]
  - Fatigue [Unknown]
  - Weight decreased [Unknown]
  - Decreased appetite [Unknown]
